FAERS Safety Report 19138471 (Version 1)
Quarter: 2021Q2

REPORT INFORMATION
  Report Type: Spontaneous
  Country: US (occurrence: US)
  Receive Date: 20210415
  Receipt Date: 20210415
  Transmission Date: 20210717
  Serious: Yes (Other)
  Sender: FDA-Public Use
  Company Number: US-SUN PHARMACEUTICAL INDUSTRIES LTD-2021R1-291045

PATIENT
  Age: 61 Year
  Sex: Male

DRUGS (2)
  1. ADALIMUMAB [Suspect]
     Active Substance: ADALIMUMAB
     Indication: DERMATITIS
     Dosage: 40 MG/0.8 ML PEN INJECTOR KIT SUBCUTANEOUS, WEEKLY
     Route: 058
     Dates: start: 20170202
  2. ISOTRETINOIN. [Suspect]
     Active Substance: ISOTRETINOIN
     Indication: PRODUCT USED FOR UNKNOWN INDICATION
     Dosage: 10 MILLIGRAM, DAILY
     Route: 048

REACTIONS (4)
  - Weight decreased [Unknown]
  - Condition aggravated [Unknown]
  - Chills [Unknown]
  - Skin burning sensation [Unknown]
